FAERS Safety Report 5822414-5 (Version None)
Quarter: 2008Q3

REPORT INFORMATION
  Report Type: 
  Country: None (occurrence: None)
  Receive Date: 20080721
  Receipt Date: 20080707
  Transmission Date: 20090109
  Serious: Yes (Death, Hospitalization)
  Sender: FDA-Public Use
  Company Number: 2008001391

PATIENT
  Age: 85 Year
  Sex: Male

DRUGS (6)
  1. ERLOTINIB (ERLOTINIB) (TABLET) (ERLOTINIB) [Suspect]
     Indication: NON-SMALL CELL LUNG CANCER
     Dosage: 100 MG QD ORAL
     Route: 048
     Dates: start: 20080403, end: 20080606
  2. GEMCITABINE [Suspect]
     Indication: NON-SMALL CELL LUNG CANCER
     Dosage: 1520 MG, INTRAVENOUS
     Route: 042
     Dates: start: 20080403, end: 20080529
  3. ASPIRIN [Concomitant]
  4. METOCLOPRAMIDE [Concomitant]
  5. LOPERAMIDE [Concomitant]
  6. RANITIDINE [Concomitant]

REACTIONS (5)
  - ACUTE PULMONARY OEDEMA [None]
  - DEHYDRATION [None]
  - GENERAL PHYSICAL HEALTH DETERIORATION [None]
  - NAUSEA [None]
  - WEIGHT DECREASED [None]
